FAERS Safety Report 5467066-1 (Version None)
Quarter: 2007Q3

REPORT INFORMATION
  Report Type: 
  Country: None (occurrence: None)
  Receive Date: 20070924
  Receipt Date: 20070924
  Transmission Date: 20080115
  Serious: Yes (Hospitalization)
  Sender: FDA-Public Use
  Company Number: None

PATIENT
  Sex: Male
  Weight: 115 kg

DRUGS (4)
  1. FLUOROURACIL [Suspect]
     Dosage: 690 MG
  2. CISPLATIN [Suspect]
     Dosage: 103 MG
  3. ERBITUX [Suspect]
     Dosage: 575 MG
  4. EPIRUBICIN [Suspect]
     Dosage: 87 MG

REACTIONS (3)
  - CARDIAC ARREST [None]
  - FALL [None]
  - UNRESPONSIVE TO STIMULI [None]
